FAERS Safety Report 8832448 (Version 1)
Quarter: 2012Q4

REPORT INFORMATION
  Report Type: Spontaneous
  Country: US (occurrence: None)
  Receive Date: 20121005
  Receipt Date: 20121005
  Transmission Date: 20130627
  Serious: Yes (Hospitalization)
  Sender: FDA-Public Use
  Company Number: None

PATIENT
  Age: 56 Year
  Sex: Male
  Weight: 93.6 kg

DRUGS (1)
  1. ASPIRIN [Suspect]
     Indication: AMAUROSIS FUGAX
     Dosage: 325 MG EVERY DAY PO
     Route: 048
     Dates: start: 20120712, end: 20120918

REACTIONS (3)
  - Gastrointestinal haemorrhage [None]
  - Gastritis [None]
  - Duodenitis [None]
